FAERS Safety Report 22067457 (Version 1)
Quarter: 2023Q1

REPORT INFORMATION
  Report Type: Spontaneous
  Country: PT (occurrence: PT)
  Receive Date: 20230307
  Receipt Date: 20230307
  Transmission Date: 20230417
  Serious: Yes (Hospitalization)
  Sender: FDA-Public Use
  Company Number: PT-INFARMED-E202302-843

PATIENT
  Age: 40 Year
  Sex: Male

DRUGS (1)
  1. AMOXICILLIN\CLAVULANIC ACID [Suspect]
     Active Substance: AMOXICILLIN\CLAVULANIC ACID
     Indication: Pneumonia
     Dosage: 1000 MILLIGRAM, TWO TIMES A DAY(1 COMPRIMIDO 12/12H)
     Route: 048
     Dates: start: 20230211, end: 20230212

REACTIONS (1)
  - Circumoral swelling [Recovered/Resolved]

NARRATIVE: CASE EVENT DATE: 20230211
